FAERS Safety Report 5330267-7 (Version None)
Quarter: 2007Q2

REPORT INFORMATION
  Report Type: 
  Country: None (occurrence: None)
  Receive Date: 20070521
  Receipt Date: 20070515
  Transmission Date: 20071010
  Serious: Yes (Hospitalization)
  Sender: FDA-Public Use
  Company Number: US-ASTRAZENECA-2007UW12216

PATIENT
  Age: 55 Year
  Sex: Male

DRUGS (2)
  1. SEROQUEL [Suspect]
     Dosage: 200 MG TO 300 MG
     Route: 048
  2. LORAZEPAM [Concomitant]

REACTIONS (2)
  - DYSPHEMIA [None]
  - GRIP STRENGTH DECREASED [None]
